FAERS Safety Report 7647445-4 (Version None)
Quarter: 2011Q3

REPORT INFORMATION
  Report Type: 
  Country: None (occurrence: None)
  Receive Date: 20110729
  Receipt Date: 20110729
  Transmission Date: 20111222
  Serious: Yes (Hospitalization)
  Sender: FDA-Public Use
  Company Number: None

PATIENT
  Age: 64 Year
  Sex: Female
  Weight: 80.7403 kg

DRUGS (10)
  1. ZOFRAN [Concomitant]
  2. FAMOTIDINE [Concomitant]
  3. CISPLATIN [Suspect]
  4. TAXOL [Suspect]
  5. PROMETHAZINE [Concomitant]
  6. DEXAMETHASONE [Concomitant]
  7. DIPHENHYDRAMINE HCL [Concomitant]
  8. RAD001/PLACEBO [Suspect]
  9. ANTIVERT [Concomitant]
  10. TRIAMETERENE/HYDROCHLORATHIAZIDE [Concomitant]

REACTIONS (4)
  - CSF GLUCOSE DECREASED [None]
  - CONFUSIONAL STATE [None]
  - MENINGITIS BACTERIAL [None]
  - VOMITING [None]
